FAERS Safety Report 5924417-9 (Version None)
Quarter: 2008Q3

REPORT INFORMATION
  Report Type: 
  Country: None (occurrence: None)
  Receive Date: 20080909
  Receipt Date: 20080319
  Transmission Date: 20090109
  Serious: Yes (Hospitalization)
  Sender: FDA-Public Use
  Company Number: 163-20785-08020904

PATIENT
  Age: 75 Year
  Sex: Male

DRUGS (9)
  1. THALOMID [Suspect]
     Indication: MULTIPLE MYELOMA
     Dosage: 150 MG, 3 IN 1 D, ORAL
     Route: 048
     Dates: start: 20071101
  2. LABETALOL HCL [Concomitant]
  3. GLYBURIDE [Concomitant]
  4. CLONIDINE [Concomitant]
  5. KEPPRA [Concomitant]
  6. NIFEDIPINE [Concomitant]
  7. ACTOS [Concomitant]
  8. ASPIRIN [Concomitant]
  9. ZOLOFT [Concomitant]

REACTIONS (1)
  - CONVULSION [None]
